FAERS Safety Report 17171500 (Version 3)
Quarter: 2023Q4

REPORT INFORMATION
  Report Type: Report from Study
  Country: FR (occurrence: FR)
  Receive Date: 20191218
  Receipt Date: 20231026
  Transmission Date: 20240110
  Serious: Yes (Death, Hospitalization, Other)
  Sender: FDA-Public Use
  Company Number: FR-JAZZ-2019-FR-017542

PATIENT

DRUGS (5)
  1. DEFITELIO [Suspect]
     Active Substance: DEFIBROTIDE SODIUM
     Indication: Venoocclusive liver disease
     Dosage: 25 MILLIGRAM/KILOGRAM, QD
     Route: 042
     Dates: start: 20191011, end: 20191016
  2. ALBUMIN HUMAN [Concomitant]
     Active Substance: ALBUMIN HUMAN
     Indication: Lung disorder
     Dosage: 20%
     Dates: start: 20191007, end: 20191013
  3. ALBUMIN HUMAN [Concomitant]
     Active Substance: ALBUMIN HUMAN
     Indication: Renal impairment
     Dosage: 20MG/100ML
     Route: 042
     Dates: start: 20191015, end: 20191015
  4. PIPERACILLIN SODIUM\TAZOBACTAM SODIUM [Concomitant]
     Active Substance: PIPERACILLIN SODIUM\TAZOBACTAM SODIUM
     Indication: Antibiotic therapy
     Dosage: 12G
     Dates: start: 20191015, end: 20191016
  5. FUROSEMIDE [Concomitant]
     Active Substance: FUROSEMIDE
     Indication: Ascites
     Dosage: 40MG
     Dates: start: 20191014, end: 20191014

REACTIONS (3)
  - Cardiotoxicity [Fatal]
  - Nephropathy toxic [Fatal]
  - Pneumonia [Unknown]

NARRATIVE: CASE EVENT DATE: 20191001
